FAERS Safety Report 4965498-9 (Version None)
Quarter: 2006Q2

REPORT INFORMATION
  Report Type: 
  Country: None (occurrence: None)
  Receive Date: 20060406
  Receipt Date: 20050419
  Transmission Date: 20061013
  Serious: Yes (Hospitalization, Other)
  Sender: FDA-Public Use
  Company Number: US-MERCK-0504USA03800

PATIENT
  Age: 60 Year
  Sex: Female
  Weight: 91 kg

DRUGS (1)
  1. VIOXX [Suspect]
     Indication: ARTHRITIS
     Route: 048
     Dates: start: 19990101, end: 20041003

REACTIONS (27)
  - ABDOMINAL DISTENSION [None]
  - AORTIC ANEURYSM [None]
  - BRONCHITIS [None]
  - CEREBROVASCULAR ACCIDENT [None]
  - DYSPNOEA [None]
  - GASTRIC ULCER [None]
  - GINGIVAL PAIN [None]
  - INTERVERTEBRAL DISC DISPLACEMENT [None]
  - INTESTINAL FUNCTIONAL DISORDER [None]
  - LUMBAR RADICULOPATHY [None]
  - MYOCARDIAL INFARCTION [None]
  - NODULE [None]
  - OSTEOARTHRITIS [None]
  - OSTEOPENIA [None]
  - PAIN IN EXTREMITY [None]
  - PATELLOFEMORAL PAIN SYNDROME [None]
  - POLYTRAUMATISM [None]
  - RALES [None]
  - RESTLESS LEGS SYNDROME [None]
  - RHEUMATOID ARTHRITIS [None]
  - RIB FRACTURE [None]
  - SMALL INTESTINAL PERFORATION [None]
  - STOMACH DISCOMFORT [None]
  - SUTURE RUPTURE [None]
  - TENDONITIS [None]
  - TENOSYNOVITIS [None]
  - THROMBOSIS [None]
